FAERS Safety Report 5446604-9 (Version None)
Quarter: 2007Q3

REPORT INFORMATION
  Report Type: 
  Country: None (occurrence: None)
  Receive Date: 20070907
  Receipt Date: 20070827
  Transmission Date: 20080115
  Serious: Yes (Other)
  Sender: FDA-Public Use
  Company Number: US-PFIZER INC-2007056625

PATIENT
  Sex: Female
  Weight: 98 kg

DRUGS (5)
  1. CHANTIX [Suspect]
     Indication: EX-SMOKER
     Dates: start: 20070325, end: 20070521
  2. CHANTIX [Suspect]
     Indication: TOBACCO ABUSE
  3. GLYBURIDE [Suspect]
     Indication: TYPE 2 DIABETES MELLITUS
  4. SYNTHROID [Concomitant]
  5. LISINOPRIL [Concomitant]
     Indication: HYPERTENSION

REACTIONS (2)
  - BLOOD GLUCOSE INCREASED [None]
  - GLYCOSYLATED HAEMOGLOBIN INCREASED [None]
